FAERS Safety Report 7691658-2 (Version None)
Quarter: 2011Q3

REPORT INFORMATION
  Report Type: 
  Country: None (occurrence: None)
  Receive Date: 20110818
  Receipt Date: 20110808
  Transmission Date: 20111222
  Serious: Yes (Hospitalization, Disabling, Other)
  Sender: FDA-Public Use
  Company Number: US-KINGPHARMUSA00001-K201100933

PATIENT
  Sex: Male
  Weight: 85.261 kg

DRUGS (6)
  1. GLIPIZIDE [Concomitant]
     Indication: DIABETES MELLITUS
  2. EMBEDA [Suspect]
     Dosage: 60 MG, BID
     Dates: start: 20101201
  3. EMBEDA [Suspect]
     Indication: PAIN
     Dosage: 80 MG, BID
     Route: 048
     Dates: end: 20110401
  4. LISINOPRIL [Concomitant]
     Indication: HYPERTENSION
     Dosage: UNK
  5. LANTUS [Concomitant]
     Indication: DIABETES MELLITUS
     Dosage: UNK
  6. ATENOLOL [Concomitant]
     Indication: HYPERTENSION
     Dosage: UNK

REACTIONS (5)
  - AMNESIA [None]
  - SPEECH DISORDER [None]
  - DRUG INEFFECTIVE [None]
  - POSTERIOR REVERSIBLE ENCEPHALOPATHY SYNDROME [None]
  - BRAIN OEDEMA [None]
